FAERS Safety Report 11092688 (Version 3)
Quarter: 2015Q3

REPORT INFORMATION
  Report Type: Spontaneous
  Country: US (occurrence: US)
  Receive Date: 20150506
  Receipt Date: 20150821
  Transmission Date: 20151125
  Serious: Yes (Hospitalization, Other)
  Sender: FDA-Public Use
  Company Number: US-BAYER-2015-180185

PATIENT
  Age: 31 Year
  Sex: Female
  Weight: 52.15 kg

DRUGS (1)
  1. MIRENA [Suspect]
     Active Substance: LEVONORGESTREL
     Indication: CONTRACEPTION
     Dosage: 20 MCG/24HR, CONT
     Route: 015
     Dates: start: 20130402, end: 20140923

REACTIONS (15)
  - Reproductive complication associated with device [Not Recovered/Not Resolved]
  - Wound infection [None]
  - Emotional distress [None]
  - Injury [Not Recovered/Not Resolved]
  - General physical health deterioration [Not Recovered/Not Resolved]
  - Seroma [None]
  - Genital haemorrhage [None]
  - Necrosis [None]
  - Haematoma [None]
  - Pain [Not Recovered/Not Resolved]
  - Depression [Not Recovered/Not Resolved]
  - Uterine perforation [Not Recovered/Not Resolved]
  - Wound dehiscence [None]
  - Scar [Not Recovered/Not Resolved]
  - Migraine [Not Recovered/Not Resolved]

NARRATIVE: CASE EVENT DATE: 201409
